FAERS Safety Report 6779549-2 (Version None)
Quarter: 2010Q2

REPORT INFORMATION
  Report Type: 
  Country: None (occurrence: None)
  Receive Date: 20100603
  Receipt Date: 19981020
  Transmission Date: 20101027
  Serious: No
  Sender: FDA-Public Use
  Company Number: 9837220

PATIENT
  Sex: Male

DRUGS (1)
  1. SILDENAFIL CITRATE [Suspect]
     Indication: ILL-DEFINED DISORDER
     Dosage: ORAL
     Route: 048
     Dates: start: 19981009

REACTIONS (3)
  - BLISTER [None]
  - DERMATITIS EXFOLIATIVE [None]
  - RASH [None]
